FAERS Safety Report 16662163 (Version 10)
Quarter: 2021Q2

REPORT INFORMATION
  Report Type: Report from Study
  Country: FR (occurrence: FR)
  Receive Date: 20190802
  Receipt Date: 20210529
  Transmission Date: 20210716
  Serious: Yes (Hospitalization, Other)
  Sender: FDA-Public Use
  Company Number: PHHY2019FR178739

PATIENT
  Age: 54 Year
  Sex: Female
  Weight: 63.8 kg

DRUGS (26)
  1. ADOPORT [Suspect]
     Active Substance: TACROLIMUS
     Dosage: 4 MG
     Route: 048
     Dates: start: 20181114, end: 20181117
  2. ADOPORT [Suspect]
     Active Substance: TACROLIMUS
     Dosage: 3 MG
     Route: 048
     Dates: start: 20181208, end: 20190522
  3. PHOSPHONEUROS [Concomitant]
     Active Substance: CALCIUM PHOSPHATE, DIBASIC, ANHYDROUS\MAGNESIUM GLYCEROPHOSPHATE\PHOSPHORIC ACID\SODIUM PHOSPHATE, DIBASIC
     Indication: PRODUCT USED FOR UNKNOWN INDICATION
     Dosage: UNK
     Route: 065
     Dates: start: 20181120
  4. ADOPORT [Suspect]
     Active Substance: TACROLIMUS
     Indication: RENAL TRANSPLANT
     Dosage: 12 MG
     Route: 048
     Dates: start: 20181111, end: 20181112
  5. ADOPORT [Suspect]
     Active Substance: TACROLIMUS
     Dosage: 6 MG
     Route: 048
     Dates: start: 20181111
  6. ADOPORT [Suspect]
     Active Substance: TACROLIMUS
     Dosage: 2 MG
     Route: 048
     Dates: start: 20190522
  7. LERCANIDIPINE [Concomitant]
     Active Substance: LERCANIDIPINE
     Indication: PRODUCT USED FOR UNKNOWN INDICATION
     Dosage: UNK
     Route: 065
     Dates: start: 20181119
  8. ADOPORT [Suspect]
     Active Substance: TACROLIMUS
     Dosage: 4 MG
     Route: 048
     Dates: start: 20181111
  9. ADOPORT [Suspect]
     Active Substance: TACROLIMUS
     Dosage: 6 MG
     Route: 048
     Dates: start: 20181118, end: 20181128
  10. SEVELAMER [Suspect]
     Active Substance: SEVELAMER
     Indication: PRODUCT USED FOR UNKNOWN INDICATION
     Dosage: 2.4 G, BID
     Route: 065
     Dates: start: 20181112, end: 20181117
  11. CELLCEPT [Suspect]
     Active Substance: MYCOPHENOLATE MOFETIL\MYCOPHENOLATE MOFETIL HYDROCHLORIDE
     Dosage: 750 MG, BID
     Route: 065
     Dates: start: 20181214, end: 20210224
  12. PANTOPRAZOLE [Concomitant]
     Active Substance: PANTOPRAZOLE
     Indication: PRODUCT USED FOR UNKNOWN INDICATION
     Dosage: UNK
     Route: 065
     Dates: start: 20181113
  13. ADOPORT [Suspect]
     Active Substance: TACROLIMUS
     Dosage: 6 MG
     Route: 048
     Dates: start: 20181112, end: 20181113
  14. ADOPORT [Suspect]
     Active Substance: TACROLIMUS
     Dosage: 4 MG
     Route: 048
     Dates: start: 20181128, end: 20181208
  15. CELLCEPT [Suspect]
     Active Substance: MYCOPHENOLATE MOFETIL\MYCOPHENOLATE MOFETIL HYDROCHLORIDE
     Indication: KIDNEY TRANSPLANT REJECTION
     Dosage: UNK
     Route: 065
     Dates: start: 20181111
  16. BACTRIM [Concomitant]
     Active Substance: SULFAMETHOXAZOLE\TRIMETHOPRIM
     Indication: PRODUCT USED FOR UNKNOWN INDICATION
     Dosage: UNK
     Route: 065
     Dates: start: 20181112
  17. EUPRESSYL [Concomitant]
     Active Substance: URAPIDIL
     Indication: PRODUCT USED FOR UNKNOWN INDICATION
     Dosage: UNK
     Route: 065
     Dates: start: 20181114
  18. SOLU?MEDROL [Concomitant]
     Active Substance: METHYLPREDNISOLONE SODIUM SUCCINATE
     Indication: PRODUCT USED FOR UNKNOWN INDICATION
     Dosage: UNK
     Route: 065
     Dates: start: 20181111
  19. ADOPORT [Suspect]
     Active Substance: TACROLIMUS
     Dosage: 3 MG
     Route: 048
     Dates: start: 20181111
  20. ADOPORT [Suspect]
     Active Substance: TACROLIMUS
     Dosage: 5 MG
     Route: 048
     Dates: start: 20181117
  21. PREDNISONE. [Concomitant]
     Active Substance: PREDNISONE
     Indication: PRODUCT USED FOR UNKNOWN INDICATION
     Dosage: UNK
     Route: 065
     Dates: start: 20181111
  22. RENVELA [Concomitant]
     Active Substance: SEVELAMER CARBONATE
     Indication: PRODUCT USED FOR UNKNOWN INDICATION
     Dosage: UNK
     Route: 065
     Dates: start: 20181111
  23. BROMAZEPAM [Concomitant]
     Active Substance: BROMAZEPAM
     Indication: PRODUCT USED FOR UNKNOWN INDICATION
     Dosage: UNK
     Route: 065
  24. ADOPORT [Suspect]
     Active Substance: TACROLIMUS
     Dosage: 3 MG
     Route: 048
     Dates: start: 20190821
  25. MOVICOL [Concomitant]
     Active Substance: POLYETHYLENE GLYCOL 3350\POTASSIUM CHLORIDE\SODIUM BICARBONATE\SODIUM CHLORIDE
     Indication: PRODUCT USED FOR UNKNOWN INDICATION
     Dosage: UNK
     Route: 065
     Dates: start: 20181119
  26. BASILIXIMAB [Concomitant]
     Active Substance: BASILIXIMAB
     Indication: PRODUCT USED FOR UNKNOWN INDICATION
     Dosage: UNK
     Route: 065
     Dates: start: 20181111

REACTIONS (27)
  - Gastroenteritis [Recovered/Resolved]
  - Amyotrophy [Recovered/Resolved]
  - Ureteric dilatation [Recovered/Resolved]
  - Diarrhoea [Recovered/Resolved]
  - Renal pain [Recovered/Resolved]
  - Back pain [Recovered/Resolved]
  - Paraesthesia [Recovered/Resolved]
  - Hyperphosphataemia [Recovered/Resolved]
  - Sleep disorder [Recovered/Resolved]
  - Asthenia [Recovered/Resolved]
  - Arthralgia [Recovered/Resolved]
  - Hypertension [Recovered/Resolved]
  - Osteopenia [Not Recovered/Not Resolved]
  - Constipation [Recovered/Resolved]
  - Pruritus [Recovered/Resolved]
  - Urinary tract infection [Recovered/Resolved]
  - Metabolic acidosis [Recovered/Resolved]
  - Hypercalcaemia [Recovered/Resolved]
  - Procedural hypotension [Recovered/Resolved]
  - Fluid overload [Recovered/Resolved]
  - Anogenital warts [Recovered/Resolved]
  - Tremor [Recovered/Resolved]
  - Asymptomatic bacteriuria [Recovered/Resolved]
  - Pollakiuria [Recovered/Resolved]
  - Hypercalcaemia [Recovered/Resolved]
  - Deafness bilateral [Recovered/Resolved]
  - Hypophosphataemia [Recovered/Resolved]

NARRATIVE: CASE EVENT DATE: 20181111
